FAERS Safety Report 17426520 (Version 1)
Quarter: 2020Q1

REPORT INFORMATION
  Report Type: Spontaneous
  Country: FR (occurrence: FR)
  Receive Date: 20200218
  Receipt Date: 20200218
  Transmission Date: 20200409
  Serious: Yes (Hospitalization)
  Sender: FDA-Public Use
  Company Number: FR-ALLERGAN-1855478US

PATIENT
  Sex: Male

DRUGS (17)
  1. MOVENTING [Concomitant]
     Indication: PRODUCT USED FOR UNKNOWN INDICATION
     Dosage: 25 MG, QD
     Route: 065
  2. NORMACOL [Concomitant]
     Active Substance: HERBALS\KARAYA GUM
     Indication: PRODUCT USED FOR UNKNOWN INDICATION
     Dosage: 1 LAVEMENT, QD
     Route: 065
  3. CORTANCYL [Concomitant]
     Active Substance: PREDNISONE
     Indication: PRODUCT USED FOR UNKNOWN INDICATION
     Dosage: 90 MG, UNKNOWN
     Route: 065
     Dates: start: 20181012
  4. PRIMPERAN [Concomitant]
     Active Substance: METOCLOPRAMIDE HYDROCHLORIDE
     Indication: NAUSEA
     Dosage: 10 MG, TID
     Route: 065
  5. TRIPTORELIN PAMOATE - BP [Suspect]
     Active Substance: TRIPTORELIN PAMOATE
     Indication: MALIGNANT MELANOMA
     Dosage: 3.75 MG, SINGLE EVERY 28 DAYS
     Route: 030
     Dates: start: 20180601, end: 20180824
  6. DUPHALAC [Concomitant]
     Active Substance: LACTULOSE
     Indication: PRODUCT USED FOR UNKNOWN INDICATION
     Dosage: 1 SACHET, TID
     Route: 065
  7. EFFEXOR [Concomitant]
     Active Substance: VENLAFAXINE HYDROCHLORIDE
     Indication: PRODUCT USED FOR UNKNOWN INDICATION
     Dosage: 37.5 MG, QD
     Route: 065
  8. BICALUTAMIDE. [Suspect]
     Active Substance: BICALUTAMIDE
     Indication: MALIGNANT MELANOMA
     Dosage: 3 MG/KG (50 MG, ONCE DAILY)
     Route: 048
     Dates: start: 20180601, end: 20180629
  9. OXYCONTIN [Concomitant]
     Active Substance: OXYCODONE HYDROCHLORIDE
     Indication: PRODUCT USED FOR UNKNOWN INDICATION
     Dosage: 40 MG, Q12H
     Route: 065
  10. DIFFU K [Concomitant]
     Active Substance: POTASSIUM CHLORIDE
     Indication: PRODUCT USED FOR UNKNOWN INDICATION
     Dosage: 1 DF, TID
     Route: 065
  11. BICALUTAMIDE. [Suspect]
     Active Substance: BICALUTAMIDE
     Dosage: 1400 MG, EVERY 1 CYCLE
     Route: 048
  12. OXYNORM [Concomitant]
     Active Substance: OXYCODONE HYDROCHLORIDE
     Indication: PRODUCT USED FOR UNKNOWN INDICATION
     Dosage: 20 MG, Q4HR
     Route: 065
  13. EFFEXOR [Concomitant]
     Active Substance: VENLAFAXINE HYDROCHLORIDE
     Dosage: 75 MG, QD
     Route: 065
     Dates: start: 20181012
  14. PARACETAMOL [Concomitant]
     Active Substance: ACETAMINOPHEN
     Indication: PRODUCT USED FOR UNKNOWN INDICATION
     Dosage: 1 G, QID
     Route: 065
  15. XANAX [Concomitant]
     Active Substance: ALPRAZOLAM
     Indication: ANXIETY
     Dosage: 0.25 MG, TID
     Route: 065
  16. NIVOLUMAB [Suspect]
     Active Substance: NIVOLUMAB
     Indication: MALIGNANT MELANOMA
     Dosage: 3 MG/KG, SINGLE EVERY 2 WEEKS (1400 MG EVERY 1 CYCLE)
     Route: 042
     Dates: start: 20180601, end: 20180907
  17. SPASFON [Concomitant]
     Indication: PRODUCT USED FOR UNKNOWN INDICATION
     Dosage: 2 DF, TID
     Route: 065

REACTIONS (2)
  - Back pain [Recovered/Resolved]
  - Abdominal pain [Recovered/Resolved]

NARRATIVE: CASE EVENT DATE: 20181008
